FAERS Safety Report 5646369-1 (Version None)
Quarter: 2008Q1

REPORT INFORMATION
  Report Type: 
  Country: None (occurrence: None)
  Receive Date: 20080227
  Receipt Date: 20080227
  Transmission Date: 20080703
  Serious: Yes (Hospitalization, Other)
  Sender: FDA-Public Use
  Company Number: None

PATIENT
  Age: 54 Year
  Sex: Female
  Weight: 124.7392 kg

DRUGS (2)
  1. ROBAXIN [Suspect]
     Indication: BACK PAIN
     Dates: start: 20071125, end: 20071127
  2. ROBAXIN [Suspect]
     Indication: MUSCLE RELAXANT THERAPY
     Dates: start: 20071125, end: 20071127

REACTIONS (7)
  - DIABETES MELLITUS [None]
  - PYREXIA [None]
  - RHEUMATOID ARTHRITIS [None]
  - SERUM SICKNESS [None]
  - URTICARIA [None]
  - WHITE BLOOD CELL COUNT DECREASED [None]
  - WHITE BLOOD CELL COUNT INCREASED [None]
